FAERS Safety Report 21034005 (Version 1)
Quarter: 2022Q2

REPORT INFORMATION
  Report Type: Spontaneous
  Country: US (occurrence: None)
  Receive Date: 20220630
  Receipt Date: 20220630
  Transmission Date: 20220721
  Serious: No
  Sender: FDA-Public Use
  Company Number: None

PATIENT
  Age: 49 Year
  Sex: Female
  Weight: 88.0 kg

DRUGS (9)
  1. RINVOQ [Suspect]
     Active Substance: UPADACITINIB
     Indication: Rheumatoid arthritis
     Dosage: FREQUENCY : DAILY;?
     Route: 048
     Dates: start: 20220526
  2. CELEXA [Concomitant]
  3. CLINDAMYCIN [Concomitant]
  4. HYDROCODONE-ACETAMINOPHEN [Concomitant]
  5. KLONOPIN [Concomitant]
     Active Substance: CLONAZEPAM
  6. LIPITOR [Concomitant]
  7. METHADONE [Concomitant]
  8. SYNTHROID [Concomitant]
  9. VYVANSE [Concomitant]

REACTIONS (7)
  - Drug ineffective [None]
  - Insurance issue [None]
  - Influenza like illness [None]
  - Fatigue [None]
  - Therapy interrupted [None]
  - Pain [None]
  - Lymphadenopathy [None]
